FAERS Safety Report 18589897 (Version 1)
Quarter: 2020Q4

REPORT INFORMATION
  Report Type: Spontaneous
  Country: US (occurrence: US)
  Receive Date: 20201207
  Receipt Date: 20201207
  Transmission Date: 20210114
  Serious: No
  Sender: FDA-Public Use
  Company Number: None

PATIENT
  Age: 68 Year
  Sex: Male

DRUGS (7)
  1. AMLODIPINE 10 MG [Concomitant]
     Active Substance: AMLODIPINE BESYLATE
     Dates: start: 20190319
  2. FLOVENT [Concomitant]
     Active Substance: FLUTICASONE PROPIONATE
     Dates: start: 20200714
  3. COSENTYX [Suspect]
     Active Substance: SECUKINUMAB
     Indication: PSORIASIS
     Route: 058
     Dates: start: 20201020
  4. CALCIPOTRIENE 0.005% [Concomitant]
     Dates: start: 20191216
  5. TRIAMCINOLONE 0.01% [Concomitant]
     Dates: start: 20190825
  6. FLUTICASONE NASAL SPRAY [Concomitant]
     Active Substance: FLUTICASONE
     Dates: start: 20190611
  7. COMBIVENT [Concomitant]
     Active Substance: ALBUTEROL SULFATE\IPRATROPIUM BROMIDE
     Dates: start: 20190413

REACTIONS (1)
  - Headache [None]

NARRATIVE: CASE EVENT DATE: 20201206
